APPROVED DRUG PRODUCT: GALLIUM GA 68 EDOTREOTIDE
Active Ingredient: GALLIUM GA-68 EDOTREOTIDE
Strength: 0.5-4mCi/ML
Dosage Form/Route: SOLUTION;INTRAVENOUS
Application: N210828 | Product #001 | TE Code: AP
Applicant: UNIV IOWA HOSPS AND CLINICS PET IMAGING CENTER
Approved: Aug 21, 2019 | RLD: Yes | RS: Yes | Type: RX

EXCLUSIVITY:
Code: ODE-383 | Date: Aug 21, 2026
Code: W | Date: Aug 21, 2026